FAERS Safety Report 14892718 (Version 2)
Quarter: 2018Q2

REPORT INFORMATION
  Report Type: Spontaneous
  Country: US (occurrence: US)
  Receive Date: 20180514
  Receipt Date: 20180621
  Transmission Date: 20180711
  Serious: Yes (Other)
  Sender: FDA-Public Use
  Company Number: US-GLAXOSMITHKLINE-US2018GSK084179

PATIENT
  Sex: Female

DRUGS (4)
  1. TREXIMET [Concomitant]
     Active Substance: NAPROXEN SODIUM\SUMATRIPTAN SUCCINATE
  2. NAPROXEN. [Concomitant]
     Active Substance: NAPROXEN
  3. SUMATRIPTAN SUCCINATE. [Suspect]
     Active Substance: SUMATRIPTAN SUCCINATE
     Dosage: 6 MG, PRN
     Route: 058
  4. LYRICA [Concomitant]
     Active Substance: PREGABALIN

REACTIONS (5)
  - Fall [Unknown]
  - Product quality issue [Unknown]
  - Device deployment issue [Unknown]
  - Spinal fracture [Unknown]
  - Dental care [Unknown]
